FAERS Safety Report 4650660-5 (Version None)
Quarter: 2005Q2

REPORT INFORMATION
  Report Type: 
  Country: None (occurrence: None)
  Receive Date: 20050331
  Receipt Date: 20050121
  Transmission Date: 20051028
  Serious: No
  Sender: FDA-Public Use
  Company Number: 05P-163-0287625-00

PATIENT
  Age: 92 Year
  Sex: Female
  Weight: 54.4316 kg

DRUGS (8)
  1. HUMIRA [Suspect]
     Indication: RHEUMATOID ARTHRITIS
     Dosage: 40 MG, 1 IN 2 WK, SUBCUTANEOUS
     Route: 058
     Dates: start: 20040701
  2. OMEPRAZOLE [Concomitant]
  3. PARACETAMOL [Concomitant]
  4. SERTRALINE HYDROCHLORIDE [Concomitant]
  5. ESTROGENS CONJUGATED [Concomitant]
  6. CALCIUM WITH VITAMIN D [Concomitant]
  7. MULTIVITAMIN [Concomitant]
  8. COSOPT [Concomitant]

REACTIONS (1)
  - DRUG INEFFECTIVE [None]
